FAERS Safety Report 7233848-9 (Version None)
Quarter: 2011Q1

REPORT INFORMATION
  Report Type: 
  Country: None (occurrence: None)
  Receive Date: 20110119
  Receipt Date: 20100219
  Transmission Date: 20110831
  Serious: Yes (Hospitalization, Other)
  Sender: FDA-Public Use
  Company Number: US-TEVA-224466USA

PATIENT
  Sex: Female

DRUGS (1)
  1. COPAXONE [Suspect]
     Indication: MULTIPLE SCLEROSIS
     Route: 058

REACTIONS (5)
  - HALLUCINATION [None]
  - DEHYDRATION [None]
  - WHITE BLOOD CELL COUNT DECREASED [None]
  - PYREXIA [None]
  - BREAST CANCER [None]
